FAERS Safety Report 9504211 (Version 2)
Quarter: 2013Q3

REPORT INFORMATION
  Report Type: Spontaneous
  Country: US (occurrence: US)
  Receive Date: 20130906
  Receipt Date: 20130919
  Transmission Date: 20140515
  Serious: Yes (Death, Hospitalization)
  Sender: FDA-Public Use
  Company Number: US-GLAXOSMITHKLINE-A1040077A

PATIENT
  Age: 62 Year
  Sex: Female

DRUGS (7)
  1. REQUIP [Suspect]
     Indication: RESTLESS LEGS SYNDROME
     Dosage: 4MG AT NIGHT
     Route: 048
     Dates: start: 2010
  2. AMITRIPTYLINE [Concomitant]
  3. LAMISIL [Concomitant]
  4. HYDROCODONE + ACETAMINOPHEN [Concomitant]
  5. LISINOPRIL [Concomitant]
  6. POTASSIUM [Concomitant]
  7. MAGNESIUM [Concomitant]

REACTIONS (2)
  - Death [Fatal]
  - Hospitalisation [Unknown]
